FAERS Safety Report 20640756 (Version 1)
Quarter: 2022Q1

REPORT INFORMATION
  Report Type: Spontaneous
  Country: US (occurrence: US)
  Receive Date: 20220327
  Receipt Date: 20220327
  Transmission Date: 20220423
  Serious: No
  Sender: FDA-Public Use
  Company Number: US-SA-SAC20220323000131

PATIENT

DRUGS (2)
  1. DUPIXENT [Suspect]
     Active Substance: DUPILUMAB
     Indication: Psoriasis
     Dosage: UNK
     Route: 065
     Dates: start: 20200807
  2. DUPIXENT [Suspect]
     Active Substance: DUPILUMAB
     Dosage: UNK UNK, Q3W
     Route: 065
     Dates: start: 202108

REACTIONS (3)
  - Psoriasis [Unknown]
  - Product prescribing issue [Unknown]
  - Product use in unapproved indication [Unknown]

NARRATIVE: CASE EVENT DATE: 20210201
